FAERS Safety Report 5748475-X (Version None)
Quarter: 2008Q2

REPORT INFORMATION
  Report Type: 
  Country: None (occurrence: None)
  Receive Date: 20080523
  Receipt Date: 20080513
  Transmission Date: 20081010
  Serious: Yes (Death)
  Sender: FDA-Public Use
  Company Number: SE-PFIZER INC-2008041332

PATIENT
  Sex: Male

DRUGS (10)
  1. PREDNISOLONE [Suspect]
     Route: 048
  2. ACETYLSALICYLIC ACID SRT [Suspect]
     Indication: CARDIAC FAILURE
     Route: 048
  3. BETAMETHASONE [Suspect]
     Indication: BRONCHITIS CHRONIC
     Route: 048
     Dates: start: 20080331, end: 20080402
  4. SERETIDE DISKUS [Concomitant]
  5. OMEPRAZOLE [Concomitant]
  6. ALVEDON [Concomitant]
     Route: 048
  7. FUROSEMIDE [Concomitant]
     Route: 048
  8. AMOXICILLIN [Concomitant]
     Route: 048
  9. COMBIVENT [Concomitant]
     Route: 055
  10. EMCONCOR [Concomitant]
     Route: 048

REACTIONS (1)
  - GASTROINTESTINAL HAEMORRHAGE [None]
